FAERS Safety Report 24820165 (Version 1)
Quarter: 2025Q1

REPORT INFORMATION
  Report Type: Report from Study
  Country: IE (occurrence: IE)
  Receive Date: 20250108
  Receipt Date: 20250108
  Transmission Date: 20250409
  Serious: Yes (Other)
  Sender: JOHNSON AND JOHNSON
  Company Number: IE-JNJFOC-20241237310

PATIENT
  Age: 40 Year
  Sex: Female

DRUGS (5)
  1. TREMFYA [Suspect]
     Active Substance: GUSELKUMAB
     Indication: Product used for unknown indication
     Route: 058
     Dates: start: 20241030
  2. AZ [AZITHROMYCIN] [Concomitant]
  3. OVREENA [Concomitant]
  4. ALBUTEROL [Concomitant]
     Active Substance: ALBUTEROL
  5. BUDESONIDE\FORMOTEROL FUMARATE [Concomitant]
     Active Substance: BUDESONIDE\FORMOTEROL FUMARATE

REACTIONS (1)
  - Lower respiratory tract infection [Recovering/Resolving]

NARRATIVE: CASE EVENT DATE: 20241125
